FAERS Safety Report 8437073-5 (Version None)
Quarter: 2012Q2

REPORT INFORMATION
  Report Type: 
  Country: None (occurrence: None)
  Receive Date: 20120614
  Receipt Date: 20120228
  Transmission Date: 20120825
  Serious: No
  Sender: FDA-Public Use
  Company Number: US-AMGEN-USASP2011020015

PATIENT
  Age: 68 Year
  Sex: Female
  Weight: 66.213 kg

DRUGS (1)
  1. PROLIA [Suspect]
     Indication: OSTEOPOROSIS POSTMENOPAUSAL
     Dosage: 60 MG, ONE TIME DOSE
     Dates: start: 20110304, end: 20110304

REACTIONS (4)
  - RASH GENERALISED [None]
  - PRURITUS [None]
  - URTICARIA [None]
  - RASH PRURITIC [None]
